FAERS Safety Report 8208171-6 (Version None)
Quarter: 2012Q1

REPORT INFORMATION
  Report Type: 
  Country: None (occurrence: None)
  Receive Date: 20120314
  Receipt Date: 20120309
  Transmission Date: 20120608
  Serious: Yes (Other)
  Sender: FDA-Public Use
  Company Number: PHHY2012MX021394

PATIENT
  Sex: Female

DRUGS (7)
  1. DIOVAN HCT [Suspect]
     Indication: HYPERTENSION
     Dosage: 1 TABLET (160/25 MG)
     Dates: start: 20111201
  2. PAROXETINE HCL [Concomitant]
     Dosage: UNK UKN, UNK
  3. ZYLOPRIM [Concomitant]
     Dosage: UNK UKN, UNK
  4. LEVOTHYROXINE SODIUM [Concomitant]
     Dosage: UNK UKN, UNK
  5. GLUCERNA ^ABBOTT^ [Concomitant]
     Dosage: UNK UKN, UNK
  6. ACETYLSALICYLIC ACID SRT [Concomitant]
     Dosage: UNK UKN, UNK
  7. ANGIOTROFIN (DILTIAZEM) [Concomitant]
     Dosage: UNK UKN, UNK

REACTIONS (1)
  - ANKLE FRACTURE [None]
